FAERS Safety Report 10655368 (Version 1)
Quarter: 2014Q4

REPORT INFORMATION
  Report Type: Spontaneous
  Country: US (occurrence: None)
  Receive Date: 20141215
  Receipt Date: 20141215
  Transmission Date: 20150529
  Serious: Yes (Other)
  Sender: FDA-Public Use
  Company Number: None

PATIENT
  Age: 71 Year
  Sex: Female
  Weight: 79.38 kg

DRUGS (1)
  1. MULTAQ [Suspect]
     Active Substance: DRONEDARONE
     Indication: ATRIAL FIBRILLATION

REACTIONS (7)
  - Skin ulcer [None]
  - Rash generalised [None]
  - Skin exfoliation [None]
  - Rash pruritic [None]
  - Impaired healing [None]
  - General physical health deterioration [None]
  - Skin discolouration [None]
